FAERS Safety Report 23558947 (Version 1)
Quarter: 2024Q1

REPORT INFORMATION
  Report Type: Spontaneous
  Country: US (occurrence: US)
  Receive Date: 20240223
  Receipt Date: 20240223
  Transmission Date: 20240409
  Serious: No
  Sender: FDA-Public Use
  Company Number: US-BAYER-2024A026174

PATIENT
  Age: 66 Year
  Sex: Female

DRUGS (2)
  1. ASTEPRO [Suspect]
     Active Substance: AZELASTINE HYDROCHLORIDE
     Indication: Viral infection
     Dosage: UNK
     Dates: start: 20240212
  2. XLEAR NASAL SPRAY [Concomitant]

REACTIONS (2)
  - Off label use [None]
  - Drug effective for unapproved indication [None]

NARRATIVE: CASE EVENT DATE: 20240212
